FAERS Safety Report 6453152-6 (Version None)
Quarter: 2009Q4

REPORT INFORMATION
  Report Type: 
  Country: None (occurrence: None)
  Receive Date: 20091123
  Receipt Date: 20091123
  Transmission Date: 20100525
  Serious: Yes (Hospitalization)
  Sender: FDA-Public Use
  Company Number: None

PATIENT
  Age: 78 Year
  Sex: Female

DRUGS (1)
  1. PRINIVIL [Suspect]
     Dosage: ORAL;2.5 MILLIGRAM
     Route: 048
     Dates: start: 20090101, end: 20090911

REACTIONS (1)
  - ANGIOEDEMA [None]
